FAERS Safety Report 9708559 (Version 1)
Quarter: 2013Q4

REPORT INFORMATION
  Report Type: Spontaneous
  Country: DK (occurrence: IT)
  Receive Date: 20131125
  Receipt Date: 20131125
  Transmission Date: 20140711
  Serious: Yes (Hospitalization)
  Sender: FDA-Public Use
  Company Number: IT-FRI-1000051678

PATIENT
  Age: 45 Year
  Sex: Female

DRUGS (2)
  1. ESCITALOPRAM [Suspect]
     Indication: DRUG ABUSE
     Dosage: OVERDOSE:560 MG ONCE
     Route: 048
     Dates: start: 20131016, end: 20131016
  2. EN [Concomitant]
     Route: 048

REACTIONS (4)
  - Confusional state [Unknown]
  - Sopor [Unknown]
  - Poisoning [Unknown]
  - Intentional overdose [Unknown]
